FAERS Safety Report 6957466-2 (Version None)
Quarter: 2010Q3

REPORT INFORMATION
  Report Type: 
  Country: None (occurrence: None)
  Receive Date: 20100831
  Receipt Date: 20100823
  Transmission Date: 20110219
  Serious: Yes (Hospitalization, Other)
  Sender: FDA-Public Use
  Company Number: BE-BAYER-200940199GPV

PATIENT
  Age: 51 Year
  Sex: Male
  Weight: 76 kg

DRUGS (5)
  1. NEXAVAR [Suspect]
     Indication: PRODUCT USED FOR UNKNOWN INDICATION
     Route: 048
     Dates: start: 20090301, end: 20091006
  2. NEXAVAR [Suspect]
     Route: 048
     Dates: start: 20091017, end: 20100318
  3. NEXAVAR [Suspect]
     Route: 048
     Dates: start: 20100301, end: 20100521
  4. NEXAVAR [Suspect]
     Route: 048
     Dates: start: 20100531, end: 20100601
  5. NEXAVAR [Suspect]
     Route: 048
     Dates: start: 20100601, end: 20100705

REACTIONS (18)
  - BLISTER [None]
  - BLOOD PRESSURE INCREASED [None]
  - BRONCHOPULMONARY ASPERGILLOSIS [None]
  - DIARRHOEA [None]
  - DYSPNOEA [None]
  - ERYTHEMA [None]
  - GAIT DISTURBANCE [None]
  - IMMUNE SYSTEM DISORDER [None]
  - MUSCLE SPASMS [None]
  - PAIN [None]
  - PAIN IN EXTREMITY [None]
  - PALMAR-PLANTAR ERYTHRODYSAESTHESIA SYNDROME [None]
  - RASH [None]
  - RASH MACULAR [None]
  - SKIN EXFOLIATION [None]
  - TOOTH EXTRACTION [None]
  - WEIGHT DECREASED [None]
  - WEIGHT INCREASED [None]
